FAERS Safety Report 5360846-2 (Version None)
Quarter: 2007Q2

REPORT INFORMATION
  Report Type: 
  Country: None (occurrence: None)
  Receive Date: 20070618
  Receipt Date: 20070611
  Transmission Date: 20071010
  Serious: Yes (Life-Threatening)
  Sender: FDA-Public Use
  Company Number: FR-SHR-FR-2007-021776

PATIENT
  Age: 70 Year
  Sex: Male

DRUGS (8)
  1. FLUDARA [Suspect]
     Dosage: 60 MG, UNK
     Route: 048
     Dates: start: 20060705, end: 20070128
  2. ENDOXAN [Suspect]
     Dosage: 900 MG, UNK
     Route: 042
     Dates: start: 20020607, end: 20031030
  3. ETOPOSIDE [Suspect]
     Dosage: 150 MG, UNK
     Route: 042
     Dates: start: 20020607, end: 20031030
  4. MABTHERA [Suspect]
     Dosage: 600 MG, UNK
     Route: 042
     Dates: start: 20060705, end: 20070125
  5. DOXORUBICIN HYDROCHLORIDE [Suspect]
     Dosage: 40 MG, UNK
     Route: 042
     Dates: start: 20020607, end: 20031030
  6. PEGINTERFERON ALFA-2B [Suspect]
     Dosage: 35 A?G, 1X/WEEK
     Route: 058
     Dates: start: 20020607, end: 20031030
  7. PREDNISOLONE [Concomitant]
     Dosage: 40 MG/M2, 1X/MONTH
     Dates: start: 20020607, end: 20031030
  8. NOVANTRONE [Concomitant]
     Dosage: 15 MG, UNK
     Dates: start: 20060705, end: 20061101

REACTIONS (2)
  - BLADDER CANCER [None]
  - NEOPLASM MALIGNANT [None]
